FAERS Safety Report 19223853 (Version 1)
Quarter: 2021Q2

REPORT INFORMATION
  Report Type: Spontaneous
  Country: BR (occurrence: BR)
  Receive Date: 20210506
  Receipt Date: 20210506
  Transmission Date: 20210717
  Serious: Yes (Other)
  Sender: FDA-Public Use
  Company Number: BR-TAKEDA-2021TUS028551

PATIENT
  Sex: Male

DRUGS (2)
  1. VENVANSE [Suspect]
     Active Substance: LISDEXAMFETAMINE DIMESYLATE
     Indication: ATTENTION DEFICIT HYPERACTIVITY DISORDER
     Dosage: 50 MILLIGRAM
     Route: 065
     Dates: start: 2018
  2. VENVANSE [Suspect]
     Active Substance: LISDEXAMFETAMINE DIMESYLATE
     Indication: NARCOLEPSY
     Dosage: 70 MILLIGRAM
     Route: 065

REACTIONS (16)
  - Swelling face [Not Recovered/Not Resolved]
  - Altered visual depth perception [Not Recovered/Not Resolved]
  - Abdominal distension [Not Recovered/Not Resolved]
  - Photophobia [Not Recovered/Not Resolved]
  - Drug ineffective [Not Recovered/Not Resolved]
  - Performance status decreased [Not Recovered/Not Resolved]
  - Mental impairment [Not Recovered/Not Resolved]
  - Impaired reasoning [Not Recovered/Not Resolved]
  - Dyspepsia [Not Recovered/Not Resolved]
  - Fatigue [Not Recovered/Not Resolved]
  - Disturbance in attention [Not Recovered/Not Resolved]
  - Somnolence [Not Recovered/Not Resolved]
  - Eye pain [Not Recovered/Not Resolved]
  - Intestinal obstruction [Not Recovered/Not Resolved]
  - Confusional state [Not Recovered/Not Resolved]
  - Adulterated product [Unknown]

NARRATIVE: CASE EVENT DATE: 202002
